FAERS Safety Report 7077214-8 (Version None)
Quarter: 2010Q4

REPORT INFORMATION
  Report Type: 
  Country: None (occurrence: None)
  Receive Date: 20101101
  Receipt Date: 20101021
  Transmission Date: 20110411
  Serious: Yes (Hospitalization)
  Sender: FDA-Public Use
  Company Number: US-BAXTER-2010BH023946

PATIENT
  Age: 62 Year
  Sex: Female

DRUGS (11)
  1. DIANEAL [Suspect]
     Indication: PERITONEAL DIALYSIS
     Route: 033
     Dates: start: 20100801
  2. EXTRANEAL [Suspect]
     Indication: PERITONEAL DIALYSIS
     Route: 033
     Dates: start: 20100801
  3. PHENERGAN [Suspect]
     Indication: NAUSEA
     Dates: start: 20100901, end: 20100901
  4. PHENERGAN [Suspect]
     Indication: VOMITING
     Dates: start: 20100901, end: 20100901
  5. HYDRALAZINE [Concomitant]
     Route: 065
  6. CLONIDINE [Concomitant]
     Route: 065
  7. LASIX [Concomitant]
     Route: 065
  8. PREVACID [Concomitant]
     Route: 065
  9. REGLAN [Concomitant]
     Route: 065
  10. SEVELAMER [Concomitant]
     Route: 065
  11. ISOSORBIDE DINITRATE [Concomitant]
     Route: 065

REACTIONS (3)
  - BLOOD PRESSURE INCREASED [None]
  - NAUSEA [None]
  - VOMITING [None]
